FAERS Safety Report 5971262-4 (Version None)
Quarter: 2008Q4

REPORT INFORMATION
  Report Type: 
  Country: None (occurrence: None)
  Receive Date: 20081128
  Receipt Date: 20081121
  Transmission Date: 20090506
  Serious: Yes (Other)
  Sender: FDA-Public Use
  Company Number: US-PFIZER INC-2008085370

PATIENT
  Sex: Female

DRUGS (5)
  1. ZITHROMAX [Suspect]
     Indication: PNEUMONIA
     Route: 030
     Dates: start: 20081009
  2. ZITHROMAX [Suspect]
     Indication: BRONCHITIS
  3. ROCEPHIN [Concomitant]
  4. LEVAQUIN [Concomitant]
  5. TESSALON [Concomitant]

REACTIONS (5)
  - APPLICATION SITE HAEMATOMA [None]
  - ERYTHEMA [None]
  - INCORRECT ROUTE OF DRUG ADMINISTRATION [None]
  - PAIN [None]
  - SWELLING [None]
